FAERS Safety Report 8479231-X (Version None)
Quarter: 2012Q2

REPORT INFORMATION
  Report Type: 
  Country: None (occurrence: None)
  Receive Date: 20120629
  Receipt Date: 20120620
  Transmission Date: 20120825
  Serious: Yes (Hospitalization)
  Sender: FDA-Public Use
  Company Number: US-GLAXOSMITHKLINE-A0865091A

PATIENT
  Age: 67 Year
  Sex: Male
  Weight: 101.8 kg

DRUGS (4)
  1. AVANDAMET [Suspect]
     Indication: TYPE 2 DIABETES MELLITUS
     Dates: start: 20071102
  2. ATENOLOL [Concomitant]
  3. AVANDIA [Suspect]
     Indication: TYPE 2 DIABETES MELLITUS
     Dates: start: 20030101, end: 20071102
  4. AMLODIPINE [Concomitant]

REACTIONS (8)
  - CARDIAC FAILURE CONGESTIVE [None]
  - CONDITION AGGRAVATED [None]
  - MYOCARDIAL INFARCTION [None]
  - CORONARY ARTERY DISEASE [None]
  - ATRIAL FIBRILLATION [None]
  - PERIPHERAL VASCULAR DISORDER [None]
  - ANAEMIA [None]
  - CAROTID ARTERY DISEASE [None]
